FAERS Safety Report 8051390-2 (Version None)
Quarter: 2012Q1

REPORT INFORMATION
  Report Type: 
  Country: None (occurrence: None)
  Receive Date: 20120117
  Receipt Date: 20100115
  Transmission Date: 20120608
  Serious: Yes (Life-Threatening)
  Sender: FDA-Public Use
  Company Number: JP-ROCHE-657397

PATIENT
  Sex: Female
  Weight: 49 kg

DRUGS (24)
  1. ACTEMRA [Suspect]
     Route: 041
     Dates: start: 20080823, end: 20080823
  2. ACTEMRA [Suspect]
     Route: 041
     Dates: start: 20090321, end: 20090321
  3. ZOSYN [Concomitant]
     Route: 042
     Dates: start: 20090901, end: 20090901
  4. VANCOMYCIN [Concomitant]
     Route: 042
     Dates: start: 20090905, end: 20090906
  5. ACTEMRA [Suspect]
     Indication: RHEUMATOID ARTHRITIS
     Route: 041
     Dates: start: 20080621, end: 20080621
  6. ACTEMRA [Suspect]
     Route: 041
     Dates: start: 20090620, end: 20090620
  7. FAMOTIDINE [Concomitant]
     Route: 048
  8. FELBINAC [Concomitant]
     Dosage: DOSE FORM REPORTED AS TAPE. DRUG NAME REPORTED AS SELTOUCH.
     Route: 061
  9. ACTEMRA [Suspect]
     Route: 041
     Dates: start: 20080719, end: 20080719
  10. ACTEMRA [Suspect]
     Route: 041
     Dates: start: 20090221, end: 20090221
  11. SELBEX [Concomitant]
     Route: 048
  12. WARFARIN SODIUM [Concomitant]
     Route: 048
  13. ACTEMRA [Suspect]
     Route: 041
     Dates: start: 20090516, end: 20090516
  14. PREDNISOLONE [Suspect]
     Indication: RHEUMATOID ARTHRITIS
     Route: 048
  15. AZULFIDINE [Concomitant]
     Dosage: FORM REPORTED AS ENTERIC.
     Route: 048
  16. CELECOXIB [Concomitant]
     Dosage: DRUG NAME REPORTED AS CELECOX.
  17. VANCOMYCIN [Concomitant]
     Route: 042
     Dates: start: 20090901, end: 20090904
  18. ACTEMRA [Suspect]
     Route: 041
     Dates: start: 20090418, end: 20090418
  19. ISONIAZID [Concomitant]
     Route: 048
  20. PYDOXAL [Concomitant]
     Route: 048
  21. ACTEMRA [Suspect]
     Route: 041
     Dates: start: 20080920, end: 20080920
  22. ACTEMRA [Suspect]
     Route: 041
     Dates: start: 20090117, end: 20090117
  23. WARFARIN SODIUM [Concomitant]
     Dosage: DRUG NAME REPORTED AS WARFARIN.
     Route: 048
  24. CLINDAMYCIN [Concomitant]
     Route: 042
     Dates: start: 20090901, end: 20090907

REACTIONS (5)
  - ERYTHEMA [None]
  - BRONCHITIS [None]
  - NECROTISING FASCIITIS [None]
  - INSOMNIA [None]
  - SKIN ULCER [None]
